FAERS Safety Report 8219724-3 (Version None)
Quarter: 2012Q1

REPORT INFORMATION
  Report Type: 
  Country: None (occurrence: None)
  Receive Date: 20120319
  Receipt Date: 20120308
  Transmission Date: 20120608
  Serious: Yes (Other)
  Sender: FDA-Public Use
  Company Number: US-ASTRAZENECA-2010SE32460

PATIENT
  Age: 64 Year
  Sex: Female

DRUGS (6)
  1. CRESTOR [Suspect]
     Route: 048
  2. TOPROL-XL [Suspect]
     Route: 048
  3. SYMBICORT [Suspect]
     Indication: LUNG CARCINOMA CELL TYPE UNSPECIFIED STAGE IV
     Dosage: 160/4.5 MCG TWO PUFFS, TWO TIMES A DAY
     Route: 055
  4. LIPITOR [Concomitant]
  5. ARIMIDEX [Suspect]
     Route: 048
  6. NEXIUM [Suspect]
     Route: 048

REACTIONS (13)
  - DIABETIC EYE DISEASE [None]
  - CANCER IN REMISSION [None]
  - MUSCLE SPASMS [None]
  - BREAST CANCER [None]
  - PLEURAL EFFUSION [None]
  - DRUG DOSE OMISSION [None]
  - LUNG NEOPLASM MALIGNANT [None]
  - OFF LABEL USE [None]
  - DIABETES MELLITUS [None]
  - MALAISE [None]
  - MEMORY IMPAIRMENT [None]
  - BLOOD CHOLESTEROL INCREASED [None]
  - PAIN IN EXTREMITY [None]
